FAERS Safety Report 11648670 (Version 3)
Quarter: 2016Q1

REPORT INFORMATION
  Report Type: Report from Study
  Country: US (occurrence: US)
  Receive Date: 20151021
  Receipt Date: 20160201
  Transmission Date: 20160525
  Serious: Yes (Other)
  Sender: FDA-Public Use
  Company Number: US-PURDUE PHARMA-USA-2015-0126891

PATIENT
  Age: 59 Year
  Sex: Female

DRUGS (3)
  1. OXYCONTIN [Suspect]
     Active Substance: OXYCODONE HYDROCHLORIDE
     Dosage: 30 MG, TID
     Route: 048
     Dates: start: 20150921
  2. OXYCONTIN [Suspect]
     Active Substance: OXYCODONE HYDROCHLORIDE
     Dosage: UNK
     Route: 048
     Dates: start: 2014
  3. OXYCONTIN [Suspect]
     Active Substance: OXYCODONE HYDROCHLORIDE
     Indication: SCIATICA
     Dosage: 30 MG, TID
     Route: 048
     Dates: start: 20151019

REACTIONS (2)
  - Fall [Unknown]
  - Wrist fracture [Unknown]

NARRATIVE: CASE EVENT DATE: 20151015
